FAERS Safety Report 10396233 (Version 1)
Quarter: 2014Q3

REPORT INFORMATION
  Report Type: Report from Study
  Country: US (occurrence: US)
  Receive Date: 20140820
  Receipt Date: 20140820
  Transmission Date: 20150326
  Serious: Yes (Hospitalization)
  Sender: FDA-Public Use
  Company Number: US-ABBVIE-14K-163-1271632-00

PATIENT
  Age: 48 Year
  Sex: Male
  Weight: 77.18 kg

DRUGS (1)
  1. HUMIRA [Suspect]
     Active Substance: ADALIMUMAB
     Indication: RHEUMATOID ARTHRITIS
     Dates: start: 2012, end: 201403

REACTIONS (3)
  - Immunodeficiency [Unknown]
  - Respiratory failure [Recovered/Resolved]
  - Hantavirus pulmonary infection [Recovered/Resolved]

NARRATIVE: CASE EVENT DATE: 201403
